FAERS Safety Report 5814473-0 (Version None)
Quarter: 2008Q3

REPORT INFORMATION
  Report Type: 
  Country: None (occurrence: None)
  Receive Date: 20080718
  Receipt Date: 20080715
  Transmission Date: 20090109
  Serious: Yes (Hospitalization)
  Sender: FDA-Public Use
  Company Number: FR-BRISTOL-MYERS SQUIBB COMPANY-14264873

PATIENT
  Age: 83 Year
  Sex: Female

DRUGS (10)
  1. ACTISKENAN CAPS 5 MG [Suspect]
     Route: 048
  2. PENICILLIN G POTASSIUM [Suspect]
     Indication: ERYSIPELAS
     Route: 042
     Dates: start: 20080417, end: 20080423
  3. PRAVADUAL [Suspect]
     Indication: PROPHYLAXIS
     Route: 048
  4. PYOSTACINE [Suspect]
     Indication: ERYSIPELAS
     Route: 048
     Dates: start: 20080423, end: 20080514
  5. TAVANIC [Suspect]
     Indication: ERYSIPELAS
     Route: 048
     Dates: start: 20080514, end: 20080605
  6. LASIX [Suspect]
     Route: 048
  7. KENZEN [Suspect]
     Indication: HYPERTENSION
     Route: 048
     Dates: end: 20080526
  8. TARDYFERON [Suspect]
     Indication: IRON DEFICIENCY
     Route: 048
     Dates: end: 20080528
  9. ASCORBIC ACID [Suspect]
     Route: 048
     Dates: start: 20080501
  10. PRAXILENE [Suspect]
     Indication: ARTERIAL DISORDER
     Route: 048
     Dates: end: 20080528

REACTIONS (3)
  - NEPHROPATHY [None]
  - RENAL FAILURE ACUTE [None]
  - URINARY TRACT INFECTION [None]
